FAERS Safety Report 9670704 (Version 1)
Quarter: 2013Q4

REPORT INFORMATION
  Report Type: Spontaneous
  Country: GB (occurrence: GB)
  Receive Date: 20131106
  Receipt Date: 20131106
  Transmission Date: 20140711
  Serious: Yes (Hospitalization)
  Sender: FDA-Public Use
  Company Number: GB-AMGEN-GBRSP2013077263

PATIENT
  Sex: Female

DRUGS (5)
  1. NEULASTA [Suspect]
     Indication: PRODUCT USED FOR UNKNOWN INDICATION
     Dosage: UNK
     Route: 065
  2. 5 FU [Concomitant]
     Indication: BREAST CANCER
     Dosage: UNK
  3. EPIRUBICIN [Concomitant]
     Indication: BREAST CANCER
     Dosage: UNK
  4. CYCLOPHOSPHAMIDE [Concomitant]
     Indication: BREAST CANCER
     Dosage: UNK
  5. TAXOTERE [Concomitant]
     Indication: BREAST CANCER
     Dosage: UNK

REACTIONS (2)
  - Neutropenia [Unknown]
  - Bone pain [Unknown]
